FAERS Safety Report 6164092-4 (Version None)
Quarter: 2009Q2

REPORT INFORMATION
  Report Type: 
  Country: None (occurrence: None)
  Receive Date: 20090422
  Receipt Date: 20090417
  Transmission Date: 20091009
  Serious: Yes (Hospitalization)
  Sender: FDA-Public Use
  Company Number: A0779747A

PATIENT
  Age: 44 Year
  Sex: Male
  Weight: 181.8 kg

DRUGS (19)
  1. AVANDIA [Suspect]
     Route: 048
     Dates: start: 20011106, end: 20060101
  2. METFORMIN HCL [Concomitant]
  3. DIABETA [Concomitant]
  4. PREDNISONE [Concomitant]
  5. FLUNISOLIDE [Concomitant]
  6. METOLAZONE [Concomitant]
  7. DEMADEX [Concomitant]
  8. CELEBREX [Concomitant]
  9. LIPITOR [Concomitant]
  10. NORTRIPTYLINE HCL [Concomitant]
  11. EFFEXOR [Concomitant]
  12. OMEPRAZOLE [Concomitant]
  13. ENDOCET [Concomitant]
  14. BIAXIN [Concomitant]
  15. ALLEGRA [Concomitant]
  16. CEFUROXIME [Concomitant]
  17. POTASSIUM CHLORIDE [Concomitant]
  18. PREVACID [Concomitant]
  19. NEURONTIN [Concomitant]

REACTIONS (2)
  - CARDIAC FAILURE CONGESTIVE [None]
  - HYPERTENSION [None]
